FAERS Safety Report 17259037 (Version 3)
Quarter: 2020Q1

REPORT INFORMATION
  Report Type: Spontaneous
  Country: US (occurrence: US)
  Receive Date: 20200110
  Receipt Date: 20200121
  Transmission Date: 20200409
  Serious: No
  Sender: FDA-Public Use
  Company Number: US-PFIZER INC-2020012172

PATIENT
  Age: 80 Year
  Sex: Female

DRUGS (1)
  1. ATORVASTATIN CALCIUM. [Suspect]
     Active Substance: ATORVASTATIN CALCIUM
     Dosage: UNK

REACTIONS (5)
  - Rash [Unknown]
  - Heart rate abnormal [Unknown]
  - Pruritus [Unknown]
  - Hypertension [Unknown]
  - Product dispensing error [Unknown]
